FAERS Safety Report 13073934 (Version 1)
Quarter: 2016Q4

REPORT INFORMATION
  Report Type: Spontaneous
  Country: TR (occurrence: TR)
  Receive Date: 20161229
  Receipt Date: 20161229
  Transmission Date: 20170207
  Serious: Yes (Other)
  Sender: FDA-Public Use
  Company Number: PHHY2016TR174810

PATIENT
  Age: 5 Month
  Sex: Male

DRUGS (11)
  1. NIFEDIPINE. [Suspect]
     Active Substance: NIFEDIPINE
     Indication: HYPERINSULINISM
     Dosage: 1 MG/KG, QD
     Route: 065
  2. GLUCAGON. [Suspect]
     Active Substance: GLUCAGON
     Indication: HYPERINSULINISM
     Dosage: 10 UG/KG, QH
     Route: 041
  3. OCTREOTIDE. [Suspect]
     Active Substance: OCTREOTIDE
     Indication: HYPERINSULINISM
     Dosage: 10 UG/KG, QD
     Route: 065
  4. OCTREOTIDE. [Suspect]
     Active Substance: OCTREOTIDE
     Dosage: 5 UG/KG, BID
     Route: 058
  5. OCTREOTIDE. [Suspect]
     Active Substance: OCTREOTIDE
     Dosage: 40 UG/KG, QD
     Route: 065
  6. SIROLIMUS. [Concomitant]
     Active Substance: SIROLIMUS
     Indication: HYPERINSULINISM
     Dosage: 0.5 MG/M2, QD
     Route: 048
  7. DIAZOXIDE [Suspect]
     Active Substance: DIAZOXIDE
     Indication: HYPERINSULINISM
     Dosage: 10 MG/KG, QD
     Route: 065
  8. DIAZOXIDE [Suspect]
     Active Substance: DIAZOXIDE
     Dosage: 25 MG/KG, QD
     Route: 065
  9. OCTREOTIDE. [Suspect]
     Active Substance: OCTREOTIDE
     Dosage: 5 UG/KG, QD
     Route: 065
  10. SIROLIMUS. [Concomitant]
     Active Substance: SIROLIMUS
     Dosage: 0.3 MG/M2, UNK
     Route: 065
  11. HYDROCHLOROTHIAZIDE. [Suspect]
     Active Substance: HYDROCHLOROTHIAZIDE
     Indication: HYPERINSULINISM
     Dosage: 1 MG/KG, QD
     Route: 065

REACTIONS (1)
  - Hypoglycaemia [Unknown]
